FAERS Safety Report 10753767 (Version 1)
Quarter: 2015Q1

REPORT INFORMATION
  Report Type: Spontaneous
  Country: JP (occurrence: None)
  Receive Date: 20150129
  Receipt Date: 20150129
  Transmission Date: 20150721
  Serious: Yes (Death)
  Sender: FDA-Public Use
  Company Number: 2015BCR00014

PATIENT

DRUGS (1)
  1. RAPIACTA [Suspect]
     Active Substance: PERAMIVIR
     Indication: INFLUENZA
     Route: 042
     Dates: start: 20150101, end: 20150102

REACTIONS (2)
  - Sepsis [None]
  - Condition aggravated [None]

NARRATIVE: CASE EVENT DATE: 20150102
